FAERS Safety Report 15454556 (Version 1)
Quarter: 2018Q3

REPORT INFORMATION
  Report Type: Spontaneous
  Country: US (occurrence: US)
  Receive Date: 20180928
  Receipt Date: 20180928
  Transmission Date: 20181010
  Serious: Yes (Other)
  Sender: FDA-Public Use
  Company Number: None

PATIENT
  Age: 63 Year
  Sex: Male
  Weight: 89.36 kg

DRUGS (1)
  1. BYDUREON [Suspect]
     Active Substance: EXENATIDE
     Indication: TYPE 2 DIABETES MELLITUS
     Route: 058
     Dates: start: 20150325, end: 20180820

REACTIONS (5)
  - Aspartate aminotransferase increased [None]
  - Lipase increased [None]
  - Alanine aminotransferase increased [None]
  - Blood bilirubin increased [None]
  - Jaundice [None]

NARRATIVE: CASE EVENT DATE: 20120820
